FAERS Safety Report 9641359 (Version 2)
Quarter: 2013Q4

REPORT INFORMATION
  Report Type: Report from Study
  Country: DE (occurrence: DE)
  Receive Date: 20131023
  Receipt Date: 20131118
  Transmission Date: 20140711
  Serious: Yes (Life-Threatening, Hospitalization)
  Sender: FDA-Public Use
  Company Number: DE-ROCHE-1291212

PATIENT
  Age: 48 Year
  Sex: Female
  Weight: 85 kg

DRUGS (6)
  1. TOCILIZUMAB [Suspect]
     Indication: RHEUMATOID ARTHRITIS
     Route: 042
     Dates: start: 20120109
  2. TOCILIZUMAB [Suspect]
     Route: 042
     Dates: start: 20120710
  3. TOCILIZUMAB [Suspect]
     Route: 042
     Dates: start: 20120807
  4. TOCILIZUMAB [Suspect]
     Route: 042
     Dates: start: 20120904
  5. TOCILIZUMAB [Suspect]
     Route: 042
     Dates: start: 20121011
  6. METHOTREXAT [Concomitant]
     Indication: RHEUMATOID ARTHRITIS
     Route: 048

REACTIONS (2)
  - Glioblastoma multiforme [Unknown]
  - Hemiparesis [Unknown]
